FAERS Safety Report 6248006-4 (Version None)
Quarter: 2009Q2

REPORT INFORMATION
  Report Type: 
  Country: None (occurrence: None)
  Receive Date: 20090626
  Receipt Date: 20090615
  Transmission Date: 20091009
  Serious: Yes (Other)
  Sender: FDA-Public Use
  Company Number: NL-AMGEN-US352764

PATIENT
  Age: 67 Year

DRUGS (1)
  1. ENBREL [Suspect]
     Indication: DRUG USE FOR UNKNOWN INDICATION
     Dosage: UNK DOSE AND FREQUENCY
     Route: 058
     Dates: start: 20071001

REACTIONS (1)
  - ACOUSTIC NEUROMA [None]
